FAERS Safety Report 9493690 (Version 1)
Quarter: 2013Q3

REPORT INFORMATION
  Report Type: Spontaneous
  Country: GB (occurrence: GB)
  Receive Date: 20130902
  Receipt Date: 20130902
  Transmission Date: 20140515
  Serious: Yes (Hospitalization)
  Sender: FDA-Public Use
  Company Number: PHHY2013GB093424

PATIENT
  Age: 49 Year
  Sex: Female

DRUGS (4)
  1. CEFTRIAXONE [Suspect]
     Indication: INFECTION
     Dosage: 2 G, OVER 30 MINUTES
     Dates: start: 20130808, end: 20130808
  2. INFLIXIMAB [Concomitant]
     Indication: RHEUMATOID ARTHRITIS
  3. METHOTREXATE [Concomitant]
     Indication: RHEUMATOID ARTHRITIS
  4. ANTIBIOTICS [Concomitant]
     Indication: INFECTION
     Route: 048

REACTIONS (4)
  - Flushing [Recovered/Resolved]
  - Paraesthesia oral [Recovered/Resolved]
  - Cough [Recovered/Resolved]
  - Urticaria [Recovered/Resolved]
